FAERS Safety Report 12820916 (Version 2)
Quarter: 2016Q4

REPORT INFORMATION
  Report Type: Spontaneous
  Country: US (occurrence: US)
  Receive Date: 20161007
  Receipt Date: 20161013
  Transmission Date: 20170207
  Serious: Yes (Other)
  Sender: FDA-Public Use
  Company Number: US-BRISTOL-MYERS SQUIBB COMPANY-BMS-2016-082583

PATIENT
  Sex: Male

DRUGS (4)
  1. YERVOY [Suspect]
     Active Substance: IPILIMUMAB
     Dosage: 800 MG, UNK
     Route: 042
     Dates: start: 20160614
  2. YERVOY [Suspect]
     Active Substance: IPILIMUMAB
     Dosage: 800 MG, UNK
     Route: 042
     Dates: start: 20160705
  3. YERVOY [Suspect]
     Active Substance: IPILIMUMAB
     Indication: MALIGNANT MELANOMA
     Dosage: 800 MG, UNK
     Route: 042
     Dates: start: 20160503
  4. YERVOY [Suspect]
     Active Substance: IPILIMUMAB
     Dosage: 800 MG, UNK
     Route: 042
     Dates: start: 20160524

REACTIONS (1)
  - Liver injury [Unknown]
